FAERS Safety Report 6681456-0 (Version None)
Quarter: 2010Q2

REPORT INFORMATION
  Report Type: 
  Country: None (occurrence: None)
  Receive Date: 20100414
  Receipt Date: 20100409
  Transmission Date: 20101027
  Serious: Yes (Hospitalization)
  Sender: FDA-Public Use
  Company Number: FR-SANOFI-AVENTIS-2010SA020496

PATIENT
  Age: 81 Year
  Sex: Female

DRUGS (6)
  1. AMIODARONE HYDROCHLORIDE [Interacting]
     Route: 048
  2. PREVISCAN [Suspect]
     Route: 048
  3. CADENS [Suspect]
     Indication: OSTEONECROSIS
     Dates: start: 20090217
  4. ZANIDIP [Suspect]
     Route: 048
  5. ZOLPIDEM [Suspect]
     Route: 048
  6. PRITOR [Suspect]
     Route: 048

REACTIONS (4)
  - DRUG INTERACTION [None]
  - HAEMATURIA [None]
  - INTERNATIONAL NORMALISED RATIO INCREASED [None]
  - MELAENA [None]
